FAERS Safety Report 22590541 (Version 2)
Quarter: 2024Q3

REPORT INFORMATION
  Report Type: Report from Study
  Country: JP (occurrence: None)
  Receive Date: 20230612
  Receipt Date: 20240819
  Transmission Date: 20241017
  Serious: Yes (Death)
  Sender: ASTRAZENECA
  Company Number: 2023A134216

PATIENT
  Age: 70 Year
  Sex: Male

DRUGS (13)
  1. IMFINZI [Suspect]
     Active Substance: DURVALUMAB
     Indication: Hepatocellular carcinoma
     Route: 042
     Dates: start: 20230425, end: 20230503
  2. IMJUDO [Suspect]
     Active Substance: TREMELIMUMAB\TREMELIMUMAB-ACTL
     Indication: Hepatocellular carcinoma
     Route: 042
     Dates: start: 20230425, end: 20230503
  3. AMLODIPINE BESYLATE [Concomitant]
     Active Substance: AMLODIPINE BESYLATE
     Dosage: DOSE UNKNOWN
  4. OLMESARTAN MEDOXOMIL [Concomitant]
     Active Substance: OLMESARTAN MEDOXOMIL
     Dosage: DOSE UNKNOWN
  5. LIVALO [Concomitant]
     Active Substance: PITAVASTATIN CALCIUM
     Dosage: DOSE UNKNOWN
  6. LUSEOGLIFLOZIN [Concomitant]
     Active Substance: LUSEOGLIFLOZIN
     Dosage: DOSE UNKNOWN
  7. VONOPRAZAN FUMARATE [Concomitant]
     Active Substance: VONOPRAZAN FUMARATE
     Dosage: DOSE UNKNOWN
  8. FEBUXOSTAT [Concomitant]
     Active Substance: FEBUXOSTAT
     Dosage: DOSE UNKNOWN
  9. VICTOZA [Concomitant]
     Active Substance: LIRAGLUTIDE
     Dosage: DOSE UNKNOWN
  10. INSULIN ASPART [Concomitant]
     Active Substance: INSULIN ASPART
     Dosage: DOSE UNKNOWN
  11. TRAMADOL [Concomitant]
     Active Substance: TRAMADOL\TRAMADOL HYDROCHLORIDE
     Dosage: DOSE UNKNOWN
  12. RIFAXIMIN [Concomitant]
     Active Substance: RIFAXIMIN
     Dosage: DOSE UNKNOWN
  13. AMINO ACIDS, SOURCE UNSPECIFIED [Concomitant]
     Active Substance: AMINO ACIDS, SOURCE UNSPECIFIED
     Dosage: DOSE UNKNOWN

REACTIONS (2)
  - Catheter site infection [Fatal]
  - Renal impairment [Fatal]

NARRATIVE: CASE EVENT DATE: 20230501
